FAERS Safety Report 7421961-2 (Version None)
Quarter: 2011Q2

REPORT INFORMATION
  Report Type: 
  Country: None (occurrence: None)
  Receive Date: 20110418
  Receipt Date: 20110407
  Transmission Date: 20111010
  Serious: Yes (Other)
  Sender: FDA-Public Use
  Company Number: US-ASTRAZENECA-2011SE19951

PATIENT
  Age: 45 Year
  Sex: Male

DRUGS (3)
  1. ASPIRIN [Concomitant]
  2. PLAVIX [Concomitant]
  3. CRESTOR [Suspect]
     Route: 048

REACTIONS (2)
  - MYOCARDIAL INFARCTION [None]
  - AMNESIA [None]
